FAERS Safety Report 4927252-3 (Version None)
Quarter: 2006Q1

REPORT INFORMATION
  Report Type: 
  Country: None (occurrence: None)
  Receive Date: 20060228
  Receipt Date: 20050316
  Transmission Date: 20060701
  Serious: No
  Sender: FDA-Public Use
  Company Number: US-GLAXOSMITHKLINE-A0550067A

PATIENT
  Age: 43 Year
  Sex: Female
  Weight: 47.7 kg

DRUGS (3)
  1. IMITREX [Suspect]
     Indication: MIGRAINE
     Dates: start: 20050316
  2. IBUPROFEN [Concomitant]
  3. TYLENOL (CAPLET) [Concomitant]

REACTIONS (1)
  - HEADACHE [None]
